FAERS Safety Report 5258253-6 (Version None)
Quarter: 2007Q1

REPORT INFORMATION
  Report Type: 
  Country: None (occurrence: None)
  Receive Date: 20070302
  Receipt Date: 20070212
  Transmission Date: 20070707
  Serious: Yes (Other)
  Sender: FDA-Public Use
  Company Number: 200610347BBE

PATIENT
  Age: 50 Year
  Sex: Female
  Weight: 175 kg

DRUGS (1)
  1. IGIVNEX - TALECRIS (IMMUNE GLOBULIN IV (HUMAN), CAPRYLATE/CHROMATOGRAP [Suspect]
     Indication: BETA HAEMOLYTIC STREPTOCOCCAL INFECTION
     Dosage: 1 G/KG; IV
     Route: 042

REACTIONS (1)
  - WOUND INFECTION STAPHYLOCOCCAL [None]
